FAERS Safety Report 16019861 (Version 1)
Quarter: 2019Q1

REPORT INFORMATION
  Report Type: Spontaneous
  Country: IT (occurrence: IT)
  Receive Date: 20190228
  Receipt Date: 20190228
  Transmission Date: 20190418
  Serious: Yes (Hospitalization)
  Sender: FDA-Public Use
  Company Number: IT-009507513-1902ITA007904

PATIENT
  Age: 68 Year
  Sex: Female

DRUGS (4)
  1. DEPAKIN [Suspect]
     Active Substance: VALPROATE SODIUM
     Indication: PRODUCT ADMINISTRATION ERROR
     Dosage: 2 GRAM  (TOTAL)
     Route: 048
     Dates: start: 20190206, end: 20190206
  2. QUETIAPINE FUMARATE. [Suspect]
     Active Substance: QUETIAPINE FUMARATE
     Indication: PRODUCT ADMINISTRATION ERROR
     Dosage: 800 MILLIGRAM  (TOTAL)
     Route: 048
     Dates: start: 20190206, end: 20190206
  3. MIRTAZAPINE. [Suspect]
     Active Substance: MIRTAZAPINE
     Indication: PRODUCT ADMINISTRATION ERROR
     Dosage: 60 MILLIGRAM (TOTAL)
     Route: 048
     Dates: start: 20190206, end: 20190206
  4. LERCANIDIPINE [Suspect]
     Active Substance: LERCANIDIPINE
     Indication: PRODUCT ADMINISTRATION ERROR
     Dosage: 20 MILLIGRAM (TOTAL)
     Route: 048
     Dates: start: 20190206, end: 20190206

REACTIONS (4)
  - Depressed level of consciousness [Recovering/Resolving]
  - Incorrect dosage administered [Recovering/Resolving]
  - Sopor [Recovering/Resolving]
  - Medication error [Recovering/Resolving]

NARRATIVE: CASE EVENT DATE: 20190206
